FAERS Safety Report 7322002-8 (Version None)
Quarter: 2011Q1

REPORT INFORMATION
  Report Type: 
  Country: None (occurrence: None)
  Receive Date: 20110228
  Receipt Date: 20110110
  Transmission Date: 20110831
  Serious: Yes (Other)
  Sender: FDA-Public Use
  Company Number: MX-BAYER-2011-009356

PATIENT
  Sex: Male
  Weight: 68 kg

DRUGS (3)
  1. AVELOX [Suspect]
     Indication: BRONCHITIS
  2. ACTRON PLUS [Concomitant]
     Dosage: 600 MG, TID
  3. AVELOX [Suspect]
     Indication: RESPIRATORY TRACT INFECTION
     Dosage: 400 MG, ONCE
     Route: 048
     Dates: start: 20101220, end: 20101220

REACTIONS (1)
  - VASCULITIS [None]
